FAERS Safety Report 7215788-4 (Version None)
Quarter: 2011Q1

REPORT INFORMATION
  Report Type: 
  Country: None (occurrence: None)
  Receive Date: 20110107
  Receipt Date: 20110106
  Transmission Date: 20110831
  Serious: Yes (Other)
  Sender: FDA-Public Use
  Company Number: JP-PFIZER INC-2010167518

PATIENT
  Age: 38 Year
  Sex: Male

DRUGS (3)
  1. GASMOTIN [Concomitant]
     Route: 048
  2. ZYLIUM [Concomitant]
     Route: 048
  3. HALCION [Suspect]
     Dosage: 0.25 MG, 1X/DAY

REACTIONS (1)
  - DIPLOPIA [None]
